FAERS Safety Report 5965068-X (Version None)
Quarter: 2008Q4

REPORT INFORMATION
  Report Type: 
  Country: None (occurrence: None)
  Receive Date: 20081125
  Receipt Date: 20081117
  Transmission Date: 20090506
  Serious: Yes (Life-Threatening, Hospitalization, Other)
  Sender: FDA-Public Use
  Company Number: PHHY2008JP26744

PATIENT
  Sex: Female
  Weight: 61 kg

DRUGS (3)
  1. LOCHOL [Suspect]
     Indication: DYSLIPIDAEMIA
     Dosage: 30 MG/DAY
     Route: 048
     Dates: start: 20080922, end: 20081021
  2. PAXIL [Suspect]
     Indication: DEPRESSION
     Dosage: 20 MG/DAY
     Route: 048
     Dates: start: 20080724, end: 20081021
  3. BUFFERIN [Concomitant]
     Dosage: UNK
     Route: 048
     Dates: start: 20081022

REACTIONS (7)
  - ALTERED STATE OF CONSCIOUSNESS [None]
  - AMNESIA [None]
  - BLOOD CREATINE PHOSPHOKINASE INCREASED [None]
  - CONCUSSION [None]
  - CONTUSION [None]
  - FALL [None]
  - HEADACHE [None]
